FAERS Safety Report 25362678 (Version 1)
Quarter: 2025Q2

REPORT INFORMATION
  Report Type: Spontaneous
  Country: KR (occurrence: KR)
  Receive Date: 20250527
  Receipt Date: 20250527
  Transmission Date: 20250716
  Serious: Yes (Other)
  Sender: BAUSCH AND LOMB
  Company Number: KR-BAUSCH-BL-2025-006524

PATIENT
  Sex: Male

DRUGS (3)
  1. LORAZEPAM [Suspect]
     Active Substance: LORAZEPAM
     Indication: Generalised tonic-clonic seizure
     Route: 065
  2. LEVETIRACETAM [Suspect]
     Active Substance: LEVETIRACETAM
     Indication: Generalised tonic-clonic seizure
     Route: 065
  3. FOSPHENYTOIN [Suspect]
     Active Substance: FOSPHENYTOIN
     Indication: Generalised tonic-clonic seizure
     Route: 065

REACTIONS (1)
  - Therapy partial responder [Unknown]
